FAERS Safety Report 4337692-1 (Version None)
Quarter: 2004Q2

REPORT INFORMATION
  Report Type: 
  Country: None (occurrence: None)
  Receive Date: 20040413
  Receipt Date: 20040325
  Transmission Date: 20050107
  Serious: Yes (Hospitalization)
  Sender: FDA-Public Use
  Company Number: US-MERCK-0403USA02432

PATIENT
  Age: 21 Year
  Sex: Female

DRUGS (3)
  1. VIOXX [Suspect]
     Indication: LIGAMENT INJURY
     Route: 048
     Dates: start: 20040101, end: 20040301
  2. VIOXX [Suspect]
     Route: 048
     Dates: start: 20040101, end: 20040101
  3. VIOXX [Suspect]
     Route: 048
     Dates: start: 20040101, end: 20040101

REACTIONS (2)
  - ABDOMINAL PAIN [None]
  - LIVER FUNCTION TEST ABNORMAL [None]
